FAERS Safety Report 5402940-3 (Version None)
Quarter: 2007Q3

REPORT INFORMATION
  Report Type: 
  Country: None (occurrence: None)
  Receive Date: 20070801
  Receipt Date: 20070723
  Transmission Date: 20080115
  Serious: Yes (Life-Threatening)
  Sender: FDA-Public Use
  Company Number: FR-GILEAD-2007-0012658

PATIENT
  Sex: Male
  Weight: 61 kg

DRUGS (4)
  1. TRUVADA [Suspect]
     Indication: HIV INFECTION
     Route: 048
     Dates: start: 20070426, end: 20070522
  2. BACTRIM [Suspect]
     Indication: PROPHYLAXIS
     Route: 048
     Dates: start: 20070426, end: 20070628
  3. KALETRA [Concomitant]
     Indication: HIV INFECTION
     Route: 048
     Dates: start: 20070605
  4. KALETRA [Concomitant]
     Route: 048
     Dates: start: 20070426, end: 20070522

REACTIONS (6)
  - BLOOD CREATININE INCREASED [None]
  - HYPERGAMMAGLOBULINAEMIA [None]
  - HYPOCOMPLEMENTAEMIA [None]
  - KIDNEY FIBROSIS [None]
  - PROTEINURIA [None]
  - RENAL TUBULAR DISORDER [None]
